FAERS Safety Report 19764104 (Version 2)
Quarter: 2021Q4

REPORT INFORMATION
  Report Type: Report from Study
  Country: JP (occurrence: JP)
  Receive Date: 20210831
  Receipt Date: 20211207
  Transmission Date: 20220303
  Serious: No
  Sender: FDA-Public Use
  Company Number: JP-SAKK-2021SA281749AA

PATIENT
  Age: 64 Year
  Sex: Female
  Weight: 44.5 kg

DRUGS (7)
  1. ISATUXIMAB [Suspect]
     Active Substance: ISATUXIMAB
     Indication: Plasma cell myeloma
     Dosage: 10 MG/KG, Q4W
     Route: 041
     Dates: start: 20200929, end: 20210119
  2. DEXAMETHASONE [Concomitant]
     Active Substance: DEXAMETHASONE
     Indication: Plasma cell myeloma
     Dosage: 40 MG, Q4W
     Route: 065
     Dates: start: 20200929, end: 20210119
  3. POMALIDOMIDE [Concomitant]
     Active Substance: POMALIDOMIDE
     Indication: Plasma cell myeloma
     Dosage: DAILY DOSAGE: 4 MG
     Route: 065
     Dates: start: 20200929, end: 20200929
  4. POMALIDOMIDE [Concomitant]
     Active Substance: POMALIDOMIDE
     Dosage: DAILY DOSAGE: 4 MG
     Route: 065
     Dates: start: 20201027, end: 20201117
  5. POMALIDOMIDE [Concomitant]
     Active Substance: POMALIDOMIDE
     Dosage: DAILY DOSAGE: 4 MG
     Route: 065
     Dates: start: 20201124, end: 20201214
  6. POMALIDOMIDE [Concomitant]
     Active Substance: POMALIDOMIDE
     Dosage: DAILY DOSAGE: 4 MG
     Route: 065
     Dates: start: 20201222, end: 20210118
  7. POMALIDOMIDE [Concomitant]
     Active Substance: POMALIDOMIDE
     Dosage: DAILY DOSAGE: 4 MG
     Route: 065
     Dates: start: 20210126, end: 20210215

REACTIONS (1)
  - No adverse event [Unknown]
